FAERS Safety Report 22040139 (Version 1)
Quarter: 2023Q1

REPORT INFORMATION
  Report Type: Spontaneous
  Country: PT (occurrence: PT)
  Receive Date: 20230227
  Receipt Date: 20230227
  Transmission Date: 20230418
  Serious: Yes (Hospitalization, Other)
  Sender: FDA-Public Use
  Company Number: PT-THEA-THEA-2018-PT-01661

PATIENT
  Age: 84 Year
  Sex: Male

DRUGS (6)
  1. CEFUROXIME SODIUM [Suspect]
     Active Substance: CEFUROXIME SODIUM
     Indication: Endophthalmitis
     Dosage: UNK, UNKNOWN FREQ.
  2. AMOXICILLIN\CLAVULANATE POTASSIUM [Suspect]
     Active Substance: AMOXICILLIN\CLAVULANATE POTASSIUM
     Indication: Urinary tract infection
     Dosage: 1 DOSAGE FORM, BID (875 PLUS 125 MG, EVERY 12 HOURS)
     Route: 048
     Dates: start: 20170130, end: 20170203
  3. CEFTAZIDIME [Suspect]
     Active Substance: CEFTAZIDIME
     Indication: Endophthalmitis
     Dosage: UNK, UNKNOWN FREQ. (INJECTION)
     Route: 050
  4. VANCOMYCIN HYDROCHLORIDE [Suspect]
     Active Substance: VANCOMYCIN HYDROCHLORIDE
     Indication: Endophthalmitis
     Dosage: UNK, UNKNOWN FREQ.
     Route: 031
  5. VANCOMYCIN [Suspect]
     Active Substance: VANCOMYCIN
     Indication: Endophthalmitis
     Dosage: UNK UNK, UNKNOWN FREQ.
     Route: 050
  6. CEFTAZIDIME [Suspect]
     Active Substance: CEFTAZIDIME
     Indication: Endophthalmitis
     Dosage: UNK, UNKNOWN FREQ.
     Route: 047

REACTIONS (4)
  - Amaurosis [Not Recovered/Not Resolved]
  - Escherichia infection [Unknown]
  - Endophthalmitis [Unknown]
  - Drug ineffective [Unknown]

NARRATIVE: CASE EVENT DATE: 20170201
